FAERS Safety Report 16259923 (Version 1)
Quarter: 2019Q2

REPORT INFORMATION
  Report Type: Spontaneous
  Country: CN (occurrence: CN)
  Receive Date: 20190501
  Receipt Date: 20190501
  Transmission Date: 20190711
  Serious: Yes (Other)
  Sender: FDA-Public Use
  Company Number: CN-009507513-1904CHN012662

PATIENT
  Age: 31 Year
  Sex: Male

DRUGS (2)
  1. IMIPENEM AND CILASTATIN [Suspect]
     Active Substance: CILASTATIN SODIUM\IMIPENEM
     Indication: ANTI-INFECTIVE THERAPY
     Dosage: UNK
     Route: 041
     Dates: start: 201610
  2. VANCOMYCIN [Suspect]
     Active Substance: VANCOMYCIN
     Indication: ANTI-INFECTIVE THERAPY
     Dosage: UNK
     Route: 041
     Dates: start: 201610

REACTIONS (2)
  - Dysbiosis [Unknown]
  - Aspergillus infection [Recovered/Resolved]

NARRATIVE: CASE EVENT DATE: 201610
